FAERS Safety Report 7621401-4 (Version None)
Quarter: 2011Q3

REPORT INFORMATION
  Report Type: 
  Country: None (occurrence: None)
  Receive Date: 20110719
  Receipt Date: 20110718
  Transmission Date: 20111222
  Serious: Yes (Other)
  Sender: FDA-Public Use
  Company Number: VE-PFIZER INC-2011154821

PATIENT
  Age: 46 Year
  Sex: Male

DRUGS (1)
  1. VARENICLINE TARTRATE [Suspect]
     Indication: SMOKING CESSATION THERAPY
     Dosage: UNK
     Route: 048

REACTIONS (6)
  - HEARING DISABILITY [None]
  - TACHYCARDIA [None]
  - DRUG INEFFECTIVE [None]
  - TINNITUS [None]
  - NICOTINE DEPENDENCE [None]
  - BACK PAIN [None]
